FAERS Safety Report 15288756 (Version 3)
Quarter: 2018Q4

REPORT INFORMATION
  Report Type: Report from Study
  Country: IT (occurrence: IT)
  Receive Date: 20180817
  Receipt Date: 20181002
  Transmission Date: 20190204
  Serious: Yes (Hospitalization)
  Sender: FDA-Public Use
  Company Number: IT-ORION CORPORATION ORION PHARMA-18_00004190

PATIENT
  Age: 71 Year
  Sex: Female

DRUGS (5)
  1. REQUIP [Suspect]
     Active Substance: ROPINIROLE HYDROCHLORIDE
     Dosage: STRENGTH: 4 MG
     Route: 048
     Dates: start: 20100423, end: 20180919
  2. STALEVO [Suspect]
     Active Substance: CARBIDOPA\ENTACAPONE\LEVODOPA
     Route: 048
     Dates: start: 20141101, end: 20180919
  3. REQUIP [Suspect]
     Active Substance: ROPINIROLE HYDROCHLORIDE
     Dosage: STRENGTH: 8 MG
     Route: 048
     Dates: start: 20100423, end: 20180919
  4. STALEVO [Suspect]
     Active Substance: CARBIDOPA\ENTACAPONE\LEVODOPA
     Indication: PARKINSONISM
     Dosage: STRENGTH: 75/18.75/200 MG
     Route: 048
     Dates: start: 20141101, end: 20180919
  5. REQUIP [Suspect]
     Active Substance: ROPINIROLE HYDROCHLORIDE
     Indication: PARKINSONISM
     Dosage: STRENGTH: 2 MG
     Route: 048
     Dates: start: 20100423, end: 20180919

REACTIONS (6)
  - Illusion [Recovering/Resolving]
  - Orthostatic hypotension [Recovering/Resolving]
  - Fall [Recovering/Resolving]
  - Spinal fracture [Recovering/Resolving]
  - Somnolence [Recovering/Resolving]
  - Dreamy state [Recovering/Resolving]

NARRATIVE: CASE EVENT DATE: 20161001
